FAERS Safety Report 10173051 (Version 1)
Quarter: 2014Q2

REPORT INFORMATION
  Report Type: Spontaneous
  Country: MK (occurrence: MK)
  Receive Date: 20140515
  Receipt Date: 20140515
  Transmission Date: 20141212
  Serious: Yes (Other)
  Sender: FDA-Public Use
  Company Number: MK-BAYER-2014-068203

PATIENT
  Age: 14 Year
  Sex: Female

DRUGS (1)
  1. YAZ [Suspect]
     Indication: MENORRHAGIA
     Dosage: UNK
     Dates: start: 201304

REACTIONS (3)
  - Loss of consciousness [Recovered/Resolved]
  - Tremor [Not Recovered/Not Resolved]
  - Off label use [None]
